FAERS Safety Report 9650814 (Version 2)
Quarter: 2013Q4

REPORT INFORMATION
  Report Type: Spontaneous
  Country: VE (occurrence: VE)
  Receive Date: 20131029
  Receipt Date: 20131107
  Transmission Date: 20140711
  Serious: Yes (Death, Hospitalization)
  Sender: FDA-Public Use
  Company Number: VE-AMGEN-VENSP2013076195

PATIENT
  Age: 78 Year
  Sex: Female

DRUGS (1)
  1. ENBREL [Suspect]
     Indication: RHEUMATOID ARTHRITIS
     Dosage: UNK
     Route: 058
     Dates: start: 2011, end: 201301

REACTIONS (3)
  - Respiratory arrest [Fatal]
  - Dehydration [Not Recovered/Not Resolved]
  - Drug ineffective [Not Recovered/Not Resolved]
